FAERS Safety Report 6189422-9 (Version None)
Quarter: 2009Q2

REPORT INFORMATION
  Report Type: 
  Country: None (occurrence: None)
  Receive Date: 20090512
  Receipt Date: 20090512
  Transmission Date: 20091009
  Serious: Yes (Hospitalization)
  Sender: FDA-Public Use
  Company Number: None

PATIENT
  Sex: Male
  Weight: 108.86 kg

DRUGS (1)
  1. TAXOTERE [Suspect]
     Dosage: 75 MG

REACTIONS (4)
  - CHEST DISCOMFORT [None]
  - DYSPNOEA [None]
  - HEART RATE INCREASED [None]
  - OEDEMA PERIPHERAL [None]
